FAERS Safety Report 5948517-2 (Version None)
Quarter: 2008Q4

REPORT INFORMATION
  Report Type: 
  Country: None (occurrence: None)
  Receive Date: 20081111
  Receipt Date: 20081031
  Transmission Date: 20090506
  Serious: Yes (Other)
  Sender: FDA-Public Use
  Company Number: B0545576A

PATIENT
  Sex: Female

DRUGS (3)
  1. KIVEXA [Suspect]
     Indication: HIV INFECTION
     Dates: start: 20060505, end: 20060623
  2. NORVIR [Suspect]
     Indication: HIV INFECTION
     Dates: start: 20060505, end: 20060623
  3. REYATAZ [Suspect]
     Indication: HIV INFECTION
     Dates: start: 20060505, end: 20060623

REACTIONS (1)
  - HEPATOTOXICITY [None]
